FAERS Safety Report 5377871-8 (Version None)
Quarter: 2007Q2

REPORT INFORMATION
  Report Type: 
  Country: None (occurrence: None)
  Receive Date: 20070629
  Receipt Date: 20070618
  Transmission Date: 20071010
  Serious: Yes (Other)
  Sender: FDA-Public Use
  Company Number: 2007SP012334

PATIENT
  Sex: Female

DRUGS (1)
  1. CLARITIN [Suspect]
     Indication: DRUG USE FOR UNKNOWN INDICATION
     Dosage: 1 DF; ; PO
     Route: 048

REACTIONS (4)
  - EYE SWELLING [None]
  - HEADACHE [None]
  - PHARYNGEAL OEDEMA [None]
  - SWELLING FACE [None]
